FAERS Safety Report 8342793-7 (Version None)
Quarter: 2012Q2

REPORT INFORMATION
  Report Type: 
  Country: None (occurrence: None)
  Receive Date: 20120508
  Receipt Date: 20120427
  Transmission Date: 20120825
  Serious: Yes (Hospitalization)
  Sender: FDA-Public Use
  Company Number: JP-VERTEX PHARMACEUTICALS INC.-AE-2012-001917

PATIENT
  Sex: Female

DRUGS (13)
  1. PEGINTERFERON ALFA-2B [Concomitant]
     Route: 051
     Dates: start: 20120202, end: 20120419
  2. REBETOL [Concomitant]
     Indication: HEPATITIS C
     Route: 048
     Dates: start: 20120119, end: 20120123
  3. OMEPRAZOLE [Concomitant]
     Route: 048
  4. VEEN D [Concomitant]
     Dates: start: 20120124, end: 20120127
  5. NORVASC [Concomitant]
     Route: 048
  6. REBETOL [Concomitant]
     Route: 048
     Dates: start: 20120322, end: 20120418
  7. REBETOL [Concomitant]
     Route: 048
     Dates: start: 20120201, end: 20120321
  8. REBETOL [Concomitant]
     Route: 048
     Dates: start: 20120419, end: 20120425
  9. NORVASC [Concomitant]
     Route: 048
  10. MUCOSTA [Concomitant]
     Route: 048
     Dates: start: 20120308
  11. TELAVIC (TELAPREVIR) [Suspect]
     Indication: HEPATITIS C
     Route: 048
     Dates: start: 20120119, end: 20120123
  12. PEGINTERFERON ALFA-2B [Concomitant]
     Indication: HEPATITIS C
     Route: 051
     Dates: start: 20120119, end: 20120123
  13. SOLDEM 1 [Concomitant]
     Dates: start: 20120123, end: 20120125

REACTIONS (1)
  - BLOOD CREATININE INCREASED [None]
